FAERS Safety Report 23236781 (Version 1)
Quarter: 2023Q4

REPORT INFORMATION
  Report Type: Spontaneous
  Country: ES (occurrence: None)
  Receive Date: 20231128
  Receipt Date: 20231128
  Transmission Date: 20240109
  Serious: Yes (Other)
  Sender: FDA-Public Use
  Company Number: 2023A265513

PATIENT
  Age: 61 Year
  Sex: Female

DRUGS (5)
  1. FULVESTRANT [Suspect]
     Active Substance: FULVESTRANT
     Route: 030
  2. PALBOCICLIB [Suspect]
     Active Substance: PALBOCICLIB
  3. ALPELISIB [Suspect]
     Active Substance: ALPELISIB
  4. LETROZOLE [Suspect]
     Active Substance: LETROZOLE
  5. DENOSUMAB [Suspect]
     Active Substance: DENOSUMAB

REACTIONS (5)
  - Pancreatic toxicity [Unknown]
  - Neutropenia [Unknown]
  - Anaemia [Unknown]
  - Metastases to lymph nodes [Unknown]
  - Metastases to bone [Unknown]
